FAERS Safety Report 10863723 (Version 1)
Quarter: 2015Q1

REPORT INFORMATION
  Report Type: Spontaneous
  Country: US (occurrence: US)
  Receive Date: 20150223
  Receipt Date: 20150223
  Transmission Date: 20150721
  Serious: No
  Sender: FDA-Public Use
  Company Number: US-ENDO PHARMACEUTICALS INC.-HCDA20140139

PATIENT
  Age: 60 Year
  Sex: Female

DRUGS (1)
  1. HYDROCODONE BITARTRATE/APAP TABLETS 5MG/300MG [Suspect]
     Active Substance: ACETAMINOPHEN\HYDROCODONE BITARTRATE
     Indication: PAIN
     Dosage: 5/300MG
     Route: 065
     Dates: start: 2011

REACTIONS (1)
  - Gastroenteritis viral [Not Recovered/Not Resolved]

NARRATIVE: CASE EVENT DATE: 20140923
